FAERS Safety Report 6779055-5 (Version None)
Quarter: 2010Q2

REPORT INFORMATION
  Report Type: 
  Country: None (occurrence: None)
  Receive Date: 20100618
  Receipt Date: 20100610
  Transmission Date: 20101027
  Serious: Yes (Other)
  Sender: FDA-Public Use
  Company Number: JP-PFIZER INC-2010067611

PATIENT
  Age: 63 Year
  Sex: Female
  Weight: 78.5 kg

DRUGS (14)
  1. ZITHROMAC SR [Suspect]
     Indication: PNEUMONIA
     Dosage: 2 G, 1X/DAY
     Route: 048
     Dates: start: 20100518, end: 20100518
  2. ZITHROMAC SR [Suspect]
     Indication: PYREXIA
  3. BUFFERIN [Concomitant]
     Indication: ANGINA PECTORIS
     Dosage: 81 MG, 1X/DAY
     Route: 048
     Dates: start: 20021016
  4. TENORMIN [Concomitant]
     Indication: HYPERTENSION
     Dosage: 50 MG, 1X/DAY
     Route: 048
     Dates: start: 20021016
  5. OMEPRAL [Concomitant]
     Indication: OESOPHAGITIS
     Dosage: 20 MG, 1X/DAY
     Dates: start: 20021016
  6. TANATRIL ^TANABE^ [Concomitant]
     Indication: ANGINA PECTORIS
     Dosage: 5 MG, 2X/DAY
     Route: 048
     Dates: start: 20021016
  7. FRANDOL [Concomitant]
     Indication: ANGINA PECTORIS
     Dosage: UNK
     Route: 062
     Dates: start: 20021016
  8. MYONAL [Concomitant]
     Indication: MUSCULOSKELETAL STIFFNESS
     Dosage: UNK
     Route: 048
     Dates: start: 20021016
  9. DEPAS [Concomitant]
     Indication: MUSCULOSKELETAL STIFFNESS
     Dosage: 0.5 MG, 3X/DAY
     Route: 048
     Dates: start: 20021016
  10. SIGMART [Concomitant]
     Indication: ANGINA PECTORIS
     Dosage: UNK /MM3, 3X/DAY
     Route: 048
     Dates: start: 20030908
  11. ACTOS [Concomitant]
     Indication: DIABETES MELLITUS
     Dosage: 30 MG, 1X/DAY
     Route: 048
     Dates: start: 20070201
  12. SLOW-FE [Concomitant]
     Indication: ANAEMIA
     Dosage: UNK
     Route: 048
     Dates: start: 20100228
  13. MAGNESIUM OXIDE HEAVY [Concomitant]
     Indication: CONSTIPATION
     Dosage: UNK
     Route: 048
     Dates: start: 20030908
  14. FRANDOL [Concomitant]
     Dosage: UNK
     Route: 048
     Dates: start: 20021016

REACTIONS (1)
  - LOSS OF CONSCIOUSNESS [None]
